FAERS Safety Report 11137755 (Version 1)
Quarter: 2015Q2

REPORT INFORMATION
  Report Type: Spontaneous
  Country: US (occurrence: US)
  Receive Date: 20150526
  Receipt Date: 20150526
  Transmission Date: 20150821
  Serious: No
  Sender: FDA-Public Use
  Company Number: US-MALLINCKRODT-T201500943

PATIENT
  Age: 59 Year
  Sex: Male

DRUGS (1)
  1. H.P. ACTHAR [Suspect]
     Active Substance: CORTICOTROPIN
     Indication: PROTEINURIA
     Dosage: 40 UNITS, TWICE WKLY
     Route: 058
     Dates: start: 20150102

REACTIONS (6)
  - Asthenia [Not Recovered/Not Resolved]
  - Sleep disorder [Unknown]
  - Weight increased [Unknown]
  - Abnormal dreams [Unknown]
  - Mood altered [Unknown]
  - Drug ineffective [Unknown]

NARRATIVE: CASE EVENT DATE: 201501
